FAERS Safety Report 5162856-7 (Version None)
Quarter: 2006Q4

REPORT INFORMATION
  Report Type: 
  Country: None (occurrence: None)
  Receive Date: 20061201
  Receipt Date: 20060227
  Transmission Date: 20070319
  Serious: Yes (Death, Hospitalization, Disabling)
  Sender: FDA-Public Use
  Company Number: DE-GLAXOSMITHKLINE-B0405165C

PATIENT
  Sex: Female
  Weight: 64.2 kg

DRUGS (1)
  1. TOPOTECAN [Suspect]
     Indication: OVARIAN CANCER
     Dosage: 1.66MG PER DAY
     Route: 042
     Dates: start: 20051230, end: 20060103

REACTIONS (5)
  - ANAEMIA [None]
  - DRUG INEFFECTIVE [None]
  - MALIGNANT ASCITES [None]
  - PYREXIA [None]
  - TUMOUR LYSIS SYNDROME [None]
